FAERS Safety Report 10178536 (Version 1)
Quarter: 2014Q2

REPORT INFORMATION
  Report Type: Spontaneous
  Country: US (occurrence: None)
  Receive Date: 20140516
  Receipt Date: 20140516
  Transmission Date: 20141212
  Serious: Yes (Life-Threatening, Hospitalization, Disabling, Other)
  Sender: FDA-Public Use
  Company Number: None

PATIENT
  Age: 31 Year
  Sex: Female
  Weight: 56.7 kg

DRUGS (1)
  1. MIRENA [Suspect]
     Indication: CONTRACEPTION
     Route: 067
     Dates: start: 20140120, end: 20140205

REACTIONS (6)
  - Intracranial venous sinus thrombosis [None]
  - Palpitations [None]
  - Hyperhidrosis [None]
  - Haemorrhage [None]
  - Cyst [None]
  - Hypoaesthesia [None]
